FAERS Safety Report 5964490-5 (Version None)
Quarter: 2008Q4

REPORT INFORMATION
  Report Type: 
  Country: None (occurrence: None)
  Receive Date: 20081121
  Receipt Date: 20081121
  Transmission Date: 20090506
  Serious: Yes (Other)
  Sender: FDA-Public Use
  Company Number: None

PATIENT
  Age: 7 Year
  Sex: Male
  Weight: 28.123 kg

DRUGS (1)
  1. STRATTERA [Suspect]
     Indication: CENTRAL AUDITORY PROCESSING DISORDER
     Dosage: 25 MG 1X 4 DAYS 50MG 1X 2 DAYS 25 MG 1X 3 DAYS
     Dates: start: 20080920, end: 20080928

REACTIONS (7)
  - CRYING [None]
  - EXCESSIVE EYE BLINKING [None]
  - EYE MOVEMENT DISORDER [None]
  - MOOD SWINGS [None]
  - PSYCHOMOTOR HYPERACTIVITY [None]
  - TIC [None]
  - WITHDRAWAL SYNDROME [None]
